FAERS Safety Report 11298750 (Version 1)
Quarter: 2015Q3

REPORT INFORMATION
  Report Type: Spontaneous
  Country: US (occurrence: US)
  Receive Date: 20150722
  Receipt Date: 20150722
  Transmission Date: 20151125
  Serious: Yes (Hospitalization)
  Sender: FDA-Public Use
  Company Number: US-ELI_LILLY_AND_COMPANY-US201203008974

PATIENT
  Age: 63 Year
  Sex: Female

DRUGS (5)
  1. PLAVIX [Concomitant]
     Active Substance: CLOPIDOGREL BISULFATE
     Dosage: 75 MG, UNK
  2. NITRO                              /00003201/ [Concomitant]
     Indication: PAIN
     Route: 042
  3. EFFIENT [Suspect]
     Active Substance: PRASUGREL HYDROCHLORIDE
     Indication: STENT PLACEMENT
     Dosage: LOADING DOSE
  4. ASPIRIN. [Concomitant]
     Active Substance: ASPIRIN
  5. ANGIOMAX [Concomitant]
     Active Substance: BIVALIRUDIN
     Indication: STENT PLACEMENT

REACTIONS (1)
  - Haemorrhage intracranial [Recovered/Resolved with Sequelae]
